FAERS Safety Report 8340008-7 (Version None)
Quarter: 2012Q2

REPORT INFORMATION
  Report Type: 
  Country: None (occurrence: None)
  Receive Date: 20120507
  Receipt Date: 20120430
  Transmission Date: 20120825
  Serious: Yes (Death)
  Sender: FDA-Public Use
  Company Number: BR-PFIZER INC-2012109887

PATIENT
  Age: 59 Year
  Sex: Male
  Weight: 87 kg

DRUGS (2)
  1. PANTOPRAZOLE [Suspect]
     Indication: GASTRITIS
     Dosage: 1 DF, 1X/DAY
     Route: 048
     Dates: start: 20120301
  2. PANTOPRAZOLE [Suspect]
     Indication: OESOPHAGITIS

REACTIONS (1)
  - DEATH [None]
